FAERS Safety Report 21713999 (Version 1)
Quarter: 2022Q4

REPORT INFORMATION
  Report Type: Spontaneous
  Country: US (occurrence: None)
  Receive Date: 20221209
  Receipt Date: 20221209
  Transmission Date: 20230112
  Serious: Yes (Hospitalization)
  Sender: FDA-Public Use
  Company Number: None

PATIENT
  Age: 86 Year
  Sex: Male
  Weight: 68.49 kg

DRUGS (1)
  1. ZOLPIDEM TARTRATE [Suspect]
     Active Substance: ZOLPIDEM TARTRATE
     Indication: Insomnia
     Dosage: FREQUENCY : AS NEEDED;?
     Route: 048
     Dates: start: 20120123, end: 20220730

REACTIONS (7)
  - Fall [None]
  - Head injury [None]
  - Back pain [None]
  - Neck pain [None]
  - Somnambulism [None]
  - Asthenia [None]
  - Mental status changes [None]

NARRATIVE: CASE EVENT DATE: 20220730
